FAERS Safety Report 6257370-1 (Version None)
Quarter: 2009Q3

REPORT INFORMATION
  Report Type: 
  Country: None (occurrence: None)
  Receive Date: 20090706
  Receipt Date: 20090702
  Transmission Date: 20100115
  Serious: Yes (Life-Threatening)
  Sender: FDA-Public Use
  Company Number: PHBS2006JP18687

PATIENT
  Sex: Male

DRUGS (11)
  1. SIMULECT [Suspect]
     Indication: RENAL TRANSPLANT
     Dosage: 20 MG/DAY
     Route: 042
     Dates: start: 20060801, end: 20060801
  2. SIMULECT [Suspect]
     Dosage: 20 MG/DAY
     Route: 042
     Dates: start: 20060805, end: 20060805
  3. PROGRAF [Suspect]
     Indication: RENAL TRANSPLANT
     Dosage: UNK, UNK
     Route: 042
     Dates: start: 20060725
  4. PROGRAF [Suspect]
     Dosage: UNK
     Route: 048
     Dates: start: 20060725
  5. MYCOPHENOLATE MOFETIL [Suspect]
     Indication: RENAL TRANSPLANT
     Dosage: UNK, UNK
     Route: 065
     Dates: start: 20060828
  6. PREDNISOLONE [Suspect]
     Indication: RENAL TRANSPLANT
     Dosage: 60 MG/DAY
     Route: 048
     Dates: start: 20060731
  7. PREDNISOLONE [Suspect]
     Dosage: 60 MG/DAY
     Route: 042
     Dates: start: 20060731
  8. PREDONINE-1 [Suspect]
     Dosage: UNK
     Dates: start: 20060731
  9. ENDOXAN [Concomitant]
     Indication: RENAL TRANSPLANT
     Dosage: UNK, UNK
     Route: 065
     Dates: end: 20060827
  10. MUCOSTA [Concomitant]
     Dosage: UNK
     Route: 048
     Dates: start: 20060725
  11. SELBEX [Concomitant]
     Dosage: UNK
     Route: 048
     Dates: start: 20060725

REACTIONS (5)
  - ABDOMINAL PAIN [None]
  - CYTOMEGALOVIRUS INFECTION [None]
  - LAPAROTOMY [None]
  - MECHANICAL ILEUS [None]
  - VOMITING [None]
